FAERS Safety Report 17692592 (Version 3)
Quarter: 2020Q3

REPORT INFORMATION
  Report Type: Spontaneous
  Country: CA (occurrence: CA)
  Receive Date: 20200422
  Receipt Date: 20200810
  Transmission Date: 20201102
  Serious: No
  Sender: FDA-Public Use
  Company Number: CA-TOLMAR, INC.-20CA020962

PATIENT
  Sex: Male

DRUGS (1)
  1. ELIGARD [Suspect]
     Active Substance: LEUPROLIDE ACETATE
     Indication: PROSTATE CANCER
     Dosage: 45 MG, Q 6 MONTH
     Route: 058
     Dates: start: 20200404

REACTIONS (5)
  - Prostatic specific antigen abnormal [Unknown]
  - Product preparation error [None]
  - Product physical consistency issue [None]
  - Underdose [None]
  - Product administration error [None]

NARRATIVE: CASE EVENT DATE: 20200404
